FAERS Safety Report 6291457-2 (Version None)
Quarter: 2009Q3

REPORT INFORMATION
  Report Type: 
  Country: None (occurrence: None)
  Receive Date: 20090730
  Receipt Date: 20090723
  Transmission Date: 20100115
  Serious: Yes (Other)
  Sender: FDA-Public Use
  Company Number: US-AVENTIS-200913533US

PATIENT
  Sex: Female

DRUGS (4)
  1. LOVENOX [Suspect]
     Indication: PULMONARY EMBOLISM
     Route: 058
     Dates: start: 20090402
  2. DIOVANE [Concomitant]
     Dosage: DOSE: 1 TAB
  3. XANAX [Concomitant]
     Dosage: DOSE: 1 TAB AS NEEDED
  4. ACIPHEX [Concomitant]
     Dosage: DOSE: 20 MG ONCE DAILY AS NEEDED

REACTIONS (6)
  - CATARACT [None]
  - CONTUSION [None]
  - INJECTION SITE DISCOMFORT [None]
  - INJECTION SITE HAEMORRHAGE [None]
  - INJECTION SITE NODULE [None]
  - MACULAR DEGENERATION [None]
